FAERS Safety Report 11392493 (Version 1)
Quarter: 2015Q3

REPORT INFORMATION
  Report Type: Report from Study
  Country: BR (occurrence: BR)
  Receive Date: 20150818
  Receipt Date: 20150818
  Transmission Date: 20151125
  Serious: Yes (Death)
  Sender: FDA-Public Use
  Company Number: PHHY2015BR099105

PATIENT
  Sex: Female
  Weight: 96 kg

DRUGS (1)
  1. DIOVAN AMLO FIX [Suspect]
     Active Substance: AMLODIPINE\VALSARTAN
     Indication: HYPERTENSION
     Dosage: 2 DF (VALSARTAN 160 MG AND AMLODIPINE 5 MG), QD (STARTED FROM MANY YEARS AGO)
     Route: 065

REACTIONS (3)
  - Blood pressure increased [Fatal]
  - Malaise [Fatal]
  - Pneumonia [Fatal]
